FAERS Safety Report 9399020 (Version 1)
Quarter: 2013Q3

REPORT INFORMATION
  Report Type: Spontaneous
  Country: JP (occurrence: JP)
  Receive Date: 20130714
  Receipt Date: 20130714
  Transmission Date: 20140515
  Serious: Yes (Hospitalization)
  Sender: FDA-Public Use
  Company Number: JP-ROCHE-1247076

PATIENT
  Age: 16 Year
  Sex: Female

DRUGS (9)
  1. AVASTIN [Suspect]
     Indication: CHOROIDAL NEOVASCULARISATION
     Route: 050
     Dates: start: 20110114
  2. AVASTIN [Suspect]
     Indication: OFF LABEL USE
  3. PREDNISOLONE [Concomitant]
     Route: 048
  4. PREDNISOLONE [Concomitant]
     Route: 048
  5. PREDNISOLONE [Concomitant]
     Route: 048
  6. PREDNISOLONE [Concomitant]
     Dosage: DOSE TAPERED
     Route: 048
  7. PREDNISOLONE [Concomitant]
     Route: 048
  8. METHYLPREDNISOLONE [Concomitant]
  9. MIZORIBINE [Concomitant]
     Route: 065

REACTIONS (1)
  - Nephrotic syndrome [Recovered/Resolved]
